FAERS Safety Report 8577278-6 (Version None)
Quarter: 2012Q2

REPORT INFORMATION
  Report Type: 
  Country: None (occurrence: None)
  Receive Date: 20120423
  Receipt Date: 20100126
  Transmission Date: 20120825
  Serious: Yes (Other)
  Sender: FDA-Public Use
  Company Number: PHEH2010US00590

PATIENT
  Sex: Female

DRUGS (1)
  1. EXJADE [Suspect]
     Dosage: 1750 MG DAILY, ORAL
     Route: 048

REACTIONS (2)
  - BLOOD CREATININE ABNORMAL [None]
  - RENAL FAILURE ACUTE [None]
